FAERS Safety Report 5062155-8 (Version None)
Quarter: 2006Q3

REPORT INFORMATION
  Report Type: 
  Country: None (occurrence: None)
  Receive Date: 20060721
  Receipt Date: 20060706
  Transmission Date: 20061208
  Serious: Yes (Death)
  Sender: FDA-Public Use
  Company Number: 111478ISR

PATIENT
  Age: 46 Year
  Sex: Male

DRUGS (5)
  1. FLUCONAZOLE [Suspect]
     Dosage: 50 MILLIGRAM, ORAL
     Route: 048
  2. FENTANYL [Suspect]
     Dosage: TRANSDERMAL
     Route: 062
  3. LIDOCAINE [Concomitant]
  4. ACETAMINOPHEN [Concomitant]
  5. METOCLOPRAMIDE [Concomitant]

REACTIONS (8)
  - BRAIN OEDEMA [None]
  - DRUG INTERACTION [None]
  - DRUG LEVEL INCREASED [None]
  - DRUG TOXICITY [None]
  - DYSPHAGIA [None]
  - PULMONARY CONGESTION [None]
  - RESPIRATORY DEPRESSION [None]
  - SHOCK [None]
